FAERS Safety Report 7908471-0 (Version None)
Quarter: 2011Q4

REPORT INFORMATION
  Report Type: 
  Country: None (occurrence: None)
  Receive Date: 20111110
  Receipt Date: 20111110
  Transmission Date: 20120403
  Serious: Yes (Other)
  Sender: FDA-Public Use
  Company Number: None

PATIENT
  Sex: Female
  Weight: 54.4316 kg

DRUGS (1)
  1. AMOXICILLIN AND CLAVULANATE POTASSIUM [Suspect]
     Indication: NASOPHARYNGITIS
     Dosage: 875 MG TABL;1 TWICE DAILY
     Dates: start: 20110916, end: 20110925

REACTIONS (9)
  - DIARRHOEA [None]
  - AGEUSIA [None]
  - URTICARIA [None]
  - ANOSMIA [None]
  - DYSPEPSIA [None]
  - BURNING SENSATION [None]
  - PRURITUS [None]
  - ABDOMINAL DISCOMFORT [None]
  - OVERDOSE [None]
